FAERS Safety Report 20774969 (Version 1)
Quarter: 2022Q2

REPORT INFORMATION
  Report Type: Spontaneous
  Country: CA (occurrence: CA)
  Receive Date: 20220502
  Receipt Date: 20220502
  Transmission Date: 20220721
  Serious: Yes (Death, Hospitalization)
  Sender: FDA-Public Use
  Company Number: CA-009507513-2204CAN008966

PATIENT
  Age: 64 Year
  Sex: Male

DRUGS (3)
  1. TEMODAL [Suspect]
     Active Substance: TEMOZOLOMIDE
     Indication: Glioblastoma
     Dosage: DOSAGE FORM: NOT SPECIFIED
  2. DEXAMETHASONE [Concomitant]
     Active Substance: DEXAMETHASONE
     Dosage: DOSAGE FORM: NOT SPECIFIED
     Route: 065
  3. SEPTRA [Concomitant]
     Active Substance: SULFAMETHOXAZOLE\TRIMETHOPRIM

REACTIONS (8)
  - Eastern Cooperative Oncology Group performance status worsened [Fatal]
  - Fatigue [Fatal]
  - Febrile neutropenia [Fatal]
  - General physical health deterioration [Fatal]
  - Malaise [Fatal]
  - Neutropenia [Fatal]
  - Pseudomonal skin infection [Fatal]
  - Thrombocytopenia [Fatal]
